FAERS Safety Report 7378618-6 (Version None)
Quarter: 2011Q1

REPORT INFORMATION
  Report Type: 
  Country: None (occurrence: None)
  Receive Date: 20110323
  Receipt Date: 20110323
  Transmission Date: 20110831
  Serious: Yes (Other)
  Sender: FDA-Public Use
  Company Number: None

PATIENT
  Age: 7 Year
  Sex: Female
  Weight: 27.2158 kg

DRUGS (1)
  1. CHILDREN'S PAIN RELIEF 160 MG PER 5 ML WALGREENS [Suspect]
     Indication: PYREXIA
     Dosage: 10 ML ONCE DAY PO
     Route: 048
     Dates: start: 20110321, end: 20110322

REACTIONS (3)
  - PRURITUS [None]
  - PYREXIA [None]
  - RASH [None]
